FAERS Safety Report 9393588 (Version 4)
Quarter: 2013Q4

REPORT INFORMATION
  Report Type: Report from Study
  Country: US (occurrence: US)
  Receive Date: 20130710
  Receipt Date: 20131031
  Transmission Date: 20140711
  Serious: Yes (Other)
  Sender: FDA-Public Use
  Company Number: US-PFIZER INC-2013193076

PATIENT
  Age: 47 Year
  Sex: Female
  Weight: 155.1 kg

DRUGS (14)
  1. TOFACITINIB CITRATE [Suspect]
     Indication: RHEUMATOID ARTHRITIS
     Dosage: 10 MG, 2X/DAY
     Route: 048
     Dates: start: 20100618, end: 20130611
  2. CYMBALTA [Concomitant]
     Indication: BACK PAIN
     Dosage: UNK
     Dates: start: 20130223
  3. FOLIC ACID [Concomitant]
     Indication: SUPPLEMENTATION THERAPY
     Dosage: UNK
     Route: 048
     Dates: start: 20081219
  4. METHOTREXATE [Concomitant]
     Indication: RHEUMATOID ARTHRITIS
     Dosage: UNK
     Route: 048
     Dates: start: 20081219
  5. ACETAMINOPHEN [Concomitant]
     Indication: JOINT SWELLING
     Dosage: UNK
     Dates: start: 2008
  6. ACETAMINOPHEN [Concomitant]
     Indication: PAIN
  7. METHADONE [Concomitant]
     Indication: PAIN
     Dosage: UNK
     Route: 048
     Dates: start: 2008
  8. SYNTHROID [Concomitant]
     Indication: HYPOTHYROIDISM
     Dosage: UNK
     Dates: start: 2004
  9. FUROSEMIDE [Concomitant]
     Indication: OEDEMA PERIPHERAL
     Dosage: UNK
     Dates: start: 2009
  10. ELAVIL [Concomitant]
     Indication: PARAESTHESIA
     Dosage: UNK
     Dates: start: 20110318
  11. PRASCION CLEANSER [Concomitant]
     Indication: ROSACEA
     Dosage: UNK
     Dates: start: 20110810
  12. LISINOPRIL/HCTZ [Concomitant]
     Indication: HYPERTENSION
     Dosage: UNK
     Dates: start: 1994
  13. MORPHINE SULFATE [Concomitant]
     Dosage: UNK
     Route: 048
  14. POTASSIUM [Concomitant]
     Dosage: 99 MG, UNK
     Route: 048

REACTIONS (1)
  - Salivary gland neoplasm [Recovered/Resolved]
